FAERS Safety Report 5416570-0 (Version None)
Quarter: 2007Q3

REPORT INFORMATION
  Report Type: 
  Country: None (occurrence: None)
  Receive Date: 20070814
  Receipt Date: 20070814
  Transmission Date: 20080115
  Serious: No
  Sender: FDA-Public Use
  Company Number: None

PATIENT
  Age: 26 Year
  Sex: Female
  Weight: 47.1741 kg

DRUGS (3)
  1. CIPRO [Suspect]
     Indication: ABDOMINAL INFECTION
     Dosage: 1 PILL EVERY 8 HOURS PO
     Route: 048
     Dates: start: 20070808, end: 20070808
  2. CIPRO [Suspect]
     Indication: KIDNEY INFECTION
     Dosage: 1 PILL EVERY 8 HOURS PO
     Route: 048
     Dates: start: 20070808, end: 20070808
  3. CIPRO [Suspect]
     Indication: URINARY TRACT INFECTION
     Dosage: 1 PILL EVERY 8 HOURS PO
     Route: 048
     Dates: start: 20070808, end: 20070808

REACTIONS (8)
  - ABNORMAL DREAMS [None]
  - ARTHRALGIA [None]
  - CONTUSION [None]
  - DIZZINESS [None]
  - FAECES PALE [None]
  - GAIT DISTURBANCE [None]
  - PAIN [None]
  - SOMNOLENCE [None]
